FAERS Safety Report 8078463-2 (Version None)
Quarter: 2012Q1

REPORT INFORMATION
  Report Type: 
  Country: None (occurrence: None)
  Receive Date: 20120127
  Receipt Date: 20120127
  Transmission Date: 20120608
  Serious: Yes (Other)
  Sender: FDA-Public Use
  Company Number: None

PATIENT
  Age: 43 Year
  Sex: Female

DRUGS (1)
  1. SIMPONI [Suspect]
     Dosage: 50MG Q MONTH SQ
     Route: 058
     Dates: start: 20111221, end: 20111228

REACTIONS (3)
  - DYSPNOEA [None]
  - ORAL PAIN [None]
  - SWOLLEN TONGUE [None]
